FAERS Safety Report 9828684 (Version 1)
Quarter: 2014Q1

REPORT INFORMATION
  Report Type: Spontaneous
  Country: CA (occurrence: CA)
  Receive Date: 20140117
  Receipt Date: 20140117
  Transmission Date: 20141002
  Serious: Yes (Other)
  Sender: FDA-Public Use
  Company Number: CA-009507513-1401CAN006114

PATIENT
  Age: 51 Year
  Sex: Female
  Weight: 63.49 kg

DRUGS (2)
  1. REMERON RD [Suspect]
     Dosage: 2 EVERY 1 DAY(S)
     Route: 048
  2. RIVOTRIL [Concomitant]
     Dosage: 2 TAB
     Route: 065

REACTIONS (7)
  - Muscle contractions involuntary [Recovered/Resolved]
  - Amnesia [Recovered/Resolved]
  - Anxiety [Recovered/Resolved]
  - Disturbance in attention [Recovered/Resolved]
  - Head discomfort [Recovered/Resolved]
  - Restless legs syndrome [Recovered/Resolved]
  - Abnormal dreams [Recovered/Resolved]
